FAERS Safety Report 22378397 (Version 5)
Quarter: 2023Q2

REPORT INFORMATION
  Report Type: Spontaneous
  Country: PK (occurrence: None)
  Receive Date: 20230529
  Receipt Date: 20230623
  Transmission Date: 20230722
  Serious: Yes (Death, Other)
  Sender: FDA-Public Use
  Company Number: PK-ROCHE-3356663

PATIENT
  Age: 33 Year
  Sex: Female

DRUGS (2)
  1. HERCEPTIN [Suspect]
     Active Substance: TRASTUZUMAB
     Indication: Breast cancer metastatic
     Route: 058
  2. KADCYLA [Suspect]
     Active Substance: ADO-TRASTUZUMAB EMTANSINE
     Indication: Breast cancer metastatic
     Dosage: KADCYLA LYOPHILIZED VIALS 160 MG
     Route: 065

REACTIONS (3)
  - Death [Fatal]
  - Breast cancer metastatic [Unknown]
  - Product complaint [Unknown]

NARRATIVE: CASE EVENT DATE: 20230228
